FAERS Safety Report 9527770 (Version 2)
Quarter: 2013Q4

REPORT INFORMATION
  Report Type: Spontaneous
  Country: US (occurrence: None)
  Receive Date: 20130913
  Receipt Date: 20131105
  Transmission Date: 20140711
  Serious: Yes (Hospitalization)
  Sender: FDA-Public Use
  Company Number: DSU-2013-04494

PATIENT
  Age: 78 Year
  Sex: Female

DRUGS (2)
  1. BENICAR HCT [Suspect]
     Indication: HYPERTENSION
     Route: 048
     Dates: start: 200911, end: 201306
  2. LIPITOR (ATORVASTATIN CALCIUM)(ATORVASTATIN CALCIUM) [Concomitant]

REACTIONS (4)
  - Diarrhoea [None]
  - Weight decreased [None]
  - Blood albumin decreased [None]
  - Shock [None]
